FAERS Safety Report 12420630 (Version 4)
Quarter: 2017Q3

REPORT INFORMATION
  Report Type: Spontaneous
  Country: US (occurrence: US)
  Receive Date: 20160531
  Receipt Date: 20170707
  Transmission Date: 20171127
  Serious: Yes (Death, Hospitalization)
  Sender: FDA-Public Use
  Company Number: US-JNJFOC-20160528026

PATIENT
  Age: 81 Year
  Sex: Male

DRUGS (2)
  1. XARELTO [Suspect]
     Active Substance: RIVAROXABAN
     Indication: THROMBOSIS PROPHYLAXIS
     Dosage: 20 MG ONCE A DAY AND 15 MG??TWICE A DAY
     Route: 048
     Dates: start: 20140614, end: 20141021
  2. XARELTO [Suspect]
     Active Substance: RIVAROXABAN
     Indication: THROMBOSIS PROPHYLAXIS
     Dosage: 20 MG ONCE A DAY AND 15 MG??TWICE A DAY
     Route: 048
     Dates: start: 20140614, end: 20141021

REACTIONS (2)
  - Haemorrhage intracranial [Fatal]
  - Internal haemorrhage [Unknown]

NARRATIVE: CASE EVENT DATE: 201408
